FAERS Safety Report 4352814-4 (Version None)
Quarter: 2004Q2

REPORT INFORMATION
  Report Type: 
  Country: None (occurrence: None)
  Receive Date: 20040429
  Receipt Date: 20040422
  Transmission Date: 20050107
  Serious: No
  Sender: FDA-Public Use
  Company Number: 2004UW08168

PATIENT
  Sex: Female

DRUGS (1)
  1. SEROQUEL [Suspect]
     Dosage: 1000 MG DAILY PO
     Route: 048
     Dates: start: 20020101

REACTIONS (3)
  - BONE DISORDER [None]
  - COUGH [None]
  - RIB FRACTURE [None]
